FAERS Safety Report 10660509 (Version 3)
Quarter: 2015Q1

REPORT INFORMATION
  Report Type: Spontaneous
  Country: US (occurrence: US)
  Receive Date: 20141217
  Receipt Date: 20150304
  Transmission Date: 20150720
  Serious: Yes (Death, Other)
  Sender: FDA-Public Use
  Company Number: US-GLAXOSMITHKLINE-A1086921A

PATIENT

DRUGS (7)
  1. LOVAZA [Concomitant]
     Active Substance: OMEGA-3-ACID ETHYL ESTERS
  2. FAMOTIDINE. [Concomitant]
     Active Substance: FAMOTIDINE
  3. LIPITOR [Concomitant]
     Active Substance: ATORVASTATIN CALCIUM
  4. VOTRIENT [Suspect]
     Active Substance: PAZOPANIB HYDROCHLORIDE
     Indication: RENAL CANCER
     Route: 048
     Dates: start: 20140716
  5. VIAGRA [Concomitant]
     Active Substance: SILDENAFIL CITRATE
  6. FLUDROCORTISONE [Concomitant]
     Active Substance: FLUDROCORTISONE
  7. PREDNISONE. [Concomitant]
     Active Substance: PREDNISONE

REACTIONS (6)
  - Vomiting [Unknown]
  - Malignant neoplasm progression [Unknown]
  - Dry mouth [Unknown]
  - Headache [Unknown]
  - Myocardial infarction [Fatal]
  - Fatigue [Unknown]

NARRATIVE: CASE EVENT DATE: 2014
